FAERS Safety Report 8045190-7 (Version None)
Quarter: 2012Q1

REPORT INFORMATION
  Report Type: 
  Country: None (occurrence: None)
  Receive Date: 20120113
  Receipt Date: 20111107
  Transmission Date: 20120608
  Serious: Yes (Hospitalization)
  Sender: FDA-Public Use
  Company Number: DE-ASTRAZENECA-2011SE67954

PATIENT
  Age: 77 Year
  Sex: Male

DRUGS (15)
  1. ZYPREXA [Concomitant]
     Route: 048
     Dates: start: 20110925, end: 20111005
  2. SEROQUEL XR [Suspect]
     Route: 048
     Dates: start: 20111006, end: 20111008
  3. MIRTAZAPINE [Suspect]
     Route: 048
     Dates: start: 20110812
  4. AMLODIPINE [Concomitant]
     Route: 048
  5. MOXONIDINE [Concomitant]
     Route: 048
  6. TAMSULOSIN HCL [Concomitant]
     Route: 048
     Dates: start: 20110826
  7. PANTOPRAZOLE [Concomitant]
     Route: 048
  8. VENLAFAXINE [Suspect]
     Dosage: UN
     Route: 048
     Dates: start: 20110816, end: 20110824
  9. VENLAFAXINE [Suspect]
     Route: 048
     Dates: start: 20110825, end: 20110912
  10. SIMVASTATIN [Concomitant]
     Route: 048
     Dates: start: 20110301
  11. SEROQUEL XR [Suspect]
     Route: 048
     Dates: start: 20111009
  12. VENLAFAXINE [Suspect]
     Route: 048
     Dates: start: 20110913, end: 20110919
  13. VENLAFAXINE [Suspect]
     Route: 048
     Dates: start: 20110920, end: 20110923
  14. VENLAFAXINE [Suspect]
     Route: 048
     Dates: start: 20110924, end: 20111012
  15. CLOPIDOGREL BISULFATE [Concomitant]
     Route: 048
     Dates: start: 20110301

REACTIONS (1)
  - URINARY RETENTION [None]
